FAERS Safety Report 24134131 (Version 2)
Quarter: 2024Q3

REPORT INFORMATION
  Report Type: Spontaneous
  Country: DE (occurrence: DE)
  Receive Date: 20240724
  Receipt Date: 20240828
  Transmission Date: 20241017
  Serious: Yes (Other)
  Sender: ABBVIE
  Company Number: DE-ABBVIE-5848639

PATIENT
  Age: 59 Year
  Sex: Male

DRUGS (3)
  1. HUMIRA [Suspect]
     Active Substance: ADALIMUMAB
     Indication: Crohn^s disease
     Route: 058
     Dates: start: 2015, end: 202307
  2. CORTISONE [Concomitant]
     Active Substance: CORTISONE
     Indication: Crohn^s disease
  3. PREDNISOLONE [Concomitant]
     Active Substance: PREDNISOLONE
     Indication: Crohn^s disease
     Dates: end: 2015

REACTIONS (8)
  - Anastomotic stenosis [Recovering/Resolving]
  - Anal abscess [Recovering/Resolving]
  - Abdominal abscess [Recovering/Resolving]
  - Abscess [Recovering/Resolving]
  - Anastomotic fistula [Recovering/Resolving]
  - Impaired healing [Recovering/Resolving]
  - Therapeutic product effect decreased [Unknown]
  - Anal fistula [Unknown]

NARRATIVE: CASE EVENT DATE: 20230701
